FAERS Safety Report 19604704 (Version 2)
Quarter: 2021Q3

REPORT INFORMATION
  Report Type: Report from Study
  Country: US (occurrence: US)
  Receive Date: 20210724
  Receipt Date: 20210830
  Transmission Date: 20211014
  Serious: No
  Sender: FDA-Public Use
  Company Number: US-TAKEDA-2021TUS045825

PATIENT
  Sex: Male

DRUGS (2)
  1. IXAZOMIB [Suspect]
     Active Substance: IXAZOMIB
     Indication: PLASMA CELL MYELOMA
     Dosage: 3 MILLIGRAM
     Route: 065
  2. REVLIMID [Suspect]
     Active Substance: LENALIDOMIDE
     Indication: PRODUCT USED FOR UNKNOWN INDICATION
     Dosage: UNK
     Route: 065

REACTIONS (8)
  - Hordeolum [Recovered/Resolved]
  - Blister [Recovered/Resolved]
  - Pain in extremity [Recovering/Resolving]
  - Rash pruritic [Recovering/Resolving]
  - Localised infection [Recovered/Resolved]
  - Somnolence [Unknown]
  - Burning feet syndrome [Recovering/Resolving]
  - Asthenia [Unknown]
